FAERS Safety Report 8976023 (Version 2)
Quarter: 2013Q2

REPORT INFORMATION
  Report Type: Spontaneous
  Country: US (occurrence: US)
  Receive Date: 20121219
  Receipt Date: 20130429
  Transmission Date: 20140414
  Serious: Yes (Hospitalization)
  Sender: FDA-Public Use
  Company Number: PHHY2012US116723

PATIENT
  Age: 68 Year
  Sex: Male

DRUGS (2)
  1. HEPARIN [Suspect]
     Indication: PROPHYLAXIS
     Route: 058
  2. INSULIN [Concomitant]
     Indication: DIABETES MELLITUS

REACTIONS (8)
  - Polydipsia [Recovered/Resolved]
  - Polyuria [Recovered/Resolved]
  - Dizziness [Recovered/Resolved]
  - Heparin-induced thrombocytopenia [Recovered/Resolved]
  - Cerebral haemorrhage [Recovered/Resolved]
  - Deep vein thrombosis [Recovered/Resolved]
  - Skin lesion [Recovered/Resolved]
  - Purpura [Recovered/Resolved]
